FAERS Safety Report 7754114-9 (Version None)
Quarter: 2011Q3

REPORT INFORMATION
  Report Type: 
  Country: None (occurrence: None)
  Receive Date: 20110913
  Receipt Date: 20110907
  Transmission Date: 20111222
  Serious: Yes (Other)
  Sender: FDA-Public Use
  Company Number: DKLU1072937

PATIENT
  Age: 4 Month
  Sex: Male

DRUGS (1)
  1. SABRIL [Suspect]
     Indication: INFANTILE SPASMS
     Dosage: 415 MG MILLIGRAM(S), 2 IN 1 D, ORAL
     Route: 048
     Dates: start: 20110810

REACTIONS (3)
  - ELECTROENCEPHALOGRAM ABNORMAL [None]
  - DRUG INEFFECTIVE [None]
  - CONDITION AGGRAVATED [None]
